FAERS Safety Report 7294851-6 (Version None)
Quarter: 2011Q1

REPORT INFORMATION
  Report Type: 
  Country: None (occurrence: None)
  Receive Date: 20110216
  Receipt Date: 20110207
  Transmission Date: 20110831
  Serious: Yes (Other)
  Sender: FDA-Public Use
  Company Number: GB-JNJFOC-20110202958

PATIENT
  Sex: Male

DRUGS (6)
  1. LOSARTAN POTASSIUM [Concomitant]
     Route: 065
  2. CYCLOSPORINE [Concomitant]
     Route: 048
  3. BENDROFLUMETHIAZIDE [Concomitant]
     Route: 065
  4. REMICADE [Suspect]
     Route: 042
  5. REMICADE [Suspect]
     Dosage: THIRD INFUSION
     Route: 042
  6. REMICADE [Suspect]
     Indication: PSORIASIS
     Dosage: 1 INFUSION ON AN UNSPECIFED DATE
     Route: 042

REACTIONS (4)
  - INFUSION RELATED REACTION [None]
  - THROAT IRRITATION [None]
  - CHEST DISCOMFORT [None]
  - FLUSHING [None]
